FAERS Safety Report 18661224 (Version 3)
Quarter: 2021Q1

REPORT INFORMATION
  Report Type: Spontaneous
  Country: US (occurrence: US)
  Receive Date: 20201224
  Receipt Date: 20210203
  Transmission Date: 20210419
  Serious: No
  Sender: FDA-Public Use
  Company Number: US-JNJFOC-20201224233

PATIENT
  Age: 23 Year
  Sex: Female
  Weight: 63.56 kg

DRUGS (3)
  1. NIACIN. [Concomitant]
     Active Substance: NIACIN
     Indication: FACTOR V DEFICIENCY
  2. NIACIN. [Concomitant]
     Active Substance: NIACIN
     Indication: ANTICOAGULANT THERAPY
     Dates: start: 20101001
  3. TREMFYA [Suspect]
     Active Substance: GUSELKUMAB
     Indication: PSORIASIS
     Route: 065
     Dates: start: 20160808

REACTIONS (6)
  - Product dose omission issue [Unknown]
  - Accidental exposure to product [Not Recovered/Not Resolved]
  - Injection site swelling [Recovered/Resolved]
  - Injection site haemorrhage [Recovered/Resolved]
  - Device malfunction [Not Recovered/Not Resolved]
  - Injection site pain [Recovered/Resolved]

NARRATIVE: CASE EVENT DATE: 20201210
